FAERS Safety Report 7724764-4 (Version None)
Quarter: 2011Q3

REPORT INFORMATION
  Report Type: 
  Country: None (occurrence: None)
  Receive Date: 20110901
  Receipt Date: 20110829
  Transmission Date: 20111222
  Serious: Yes (Other)
  Sender: FDA-Public Use
  Company Number: US-GILEAD-2011-0041579

PATIENT
  Sex: Female
  Weight: 68.554 kg

DRUGS (12)
  1. JANUVIA [Concomitant]
     Indication: DIABETES MELLITUS
  2. FISH OIL [Concomitant]
     Indication: CORONARY ARTERY DISEASE
  3. LETAIRIS [Suspect]
     Indication: PULMONARY HYPERTENSION
     Route: 048
     Dates: start: 20110405
  4. CALTRATE PLUS [Concomitant]
     Indication: OSTEOPOROSIS
  5. ASPIRIN [Concomitant]
     Indication: CORONARY ARTERY DISEASE
  6. POTASSIUM CHLORIDE [Concomitant]
  7. MULTI-VITAMIN [Concomitant]
  8. LETAIRIS [Suspect]
     Route: 048
     Dates: start: 20110421
  9. LASIX [Concomitant]
     Indication: PULMONARY ARTERIAL HYPERTENSION
  10. ADCIRCA [Concomitant]
     Indication: PULMONARY ARTERIAL HYPERTENSION
  11. METOPROLOL TARTRATE [Concomitant]
     Indication: CORONARY ARTERY DISEASE
  12. HYDROCHLOROTHIAZIDE [Concomitant]
     Indication: PULMONARY ARTERIAL HYPERTENSION

REACTIONS (2)
  - TRANSAMINASES INCREASED [None]
  - BLOOD BILIRUBIN INCREASED [None]
